FAERS Safety Report 7125629-1 (Version None)
Quarter: 2010Q4

REPORT INFORMATION
  Report Type: 
  Country: None (occurrence: None)
  Receive Date: 20101112
  Receipt Date: 20101104
  Transmission Date: 20110411
  Serious: Yes (Other)
  Sender: FDA-Public Use
  Company Number: 021541

PATIENT
  Sex: Female

DRUGS (2)
  1. XYZAL [Suspect]
     Dosage: SEE IMAGE
     Route: 048
     Dates: end: 20101025
  2. VITAMIN B NOS [Concomitant]

REACTIONS (3)
  - DRUG WITHDRAWAL SYNDROME [None]
  - FATIGUE [None]
  - FEELING ABNORMAL [None]
